FAERS Safety Report 15296787 (Version 1)
Quarter: 2018Q3

REPORT INFORMATION
  Report Type: Report from Study
  Country: US (occurrence: US)
  Receive Date: 20180820
  Receipt Date: 20180820
  Transmission Date: 20181010
  Serious: Yes (Other)
  Sender: FDA-Public Use
  Company Number: US-TESARO, INC-US-2018TSO04066

PATIENT
  Age: 80 Year
  Sex: Female

DRUGS (3)
  1. ZEJULA [Suspect]
     Active Substance: NIRAPARIB
     Indication: OVARIAN CANCER
     Dosage: 100 MG, QD
     Dates: start: 20180521
  2. ZEJULA [Suspect]
     Active Substance: NIRAPARIB
     Dosage: 100 MG, QD
     Route: 048
     Dates: start: 20180723
  3. ZEJULA [Suspect]
     Active Substance: NIRAPARIB
     Indication: AGRANULOCYTOSIS
     Dosage: 200 MG, QD
     Dates: start: 20180606

REACTIONS (4)
  - Upper limb fracture [Unknown]
  - Balance disorder [Unknown]
  - Intentional underdose [Not Recovered/Not Resolved]
  - Fall [Unknown]

NARRATIVE: CASE EVENT DATE: 20180521
